FAERS Safety Report 23424233 (Version 1)
Quarter: 2024Q1

REPORT INFORMATION
  Report Type: Spontaneous
  Country: PT (occurrence: PT)
  Receive Date: 20240120
  Receipt Date: 20240120
  Transmission Date: 20240410
  Serious: Yes (Hospitalization, Other)
  Sender: FDA-Public Use
  Company Number: PT-VKT-000425

PATIENT
  Age: 8 Month
  Sex: Male

DRUGS (1)
  1. LEVETIRACETAM [Suspect]
     Active Substance: LEVETIRACETAM
     Indication: Epilepsy
     Route: 065

REACTIONS (3)
  - Status epilepticus [Recovering/Resolving]
  - Drug ineffective [Unknown]
  - Change in seizure presentation [Recovering/Resolving]
